APPROVED DRUG PRODUCT: SOMOPHYLLIN-T
Active Ingredient: THEOPHYLLINE
Strength: 250MG
Dosage Form/Route: CAPSULE;ORAL
Application: A087155 | Product #003
Applicant: FISONS CORP
Approved: Feb 25, 1985 | RLD: No | RS: No | Type: DISCN